FAERS Safety Report 5689037-2 (Version None)
Quarter: 2008Q1

REPORT INFORMATION
  Report Type: 
  Country: None (occurrence: None)
  Receive Date: 20080331
  Receipt Date: 20080325
  Transmission Date: 20080703
  Serious: Yes (Other)
  Sender: FDA-Public Use
  Company Number: B0477213A

PATIENT
  Age: 64 Year
  Sex: Female

DRUGS (13)
  1. PAXIL [Suspect]
     Indication: DEPRESSED MOOD
     Dosage: 10MG PER DAY
     Route: 048
     Dates: start: 20070529, end: 20070531
  2. PEROSPIRONE [Suspect]
     Route: 065
     Dates: start: 20070401, end: 20070531
  3. FUROSEMIDE [Concomitant]
  4. AMLODIPINE BESYLATE [Concomitant]
     Indication: HYPERTENSION
  5. LOSARTAN POTASSIUM [Concomitant]
     Indication: HYPERTENSION
  6. NIFEDIPINE [Concomitant]
     Indication: HYPERTENSION
  7. ATORVASTATIN CALCIUM [Concomitant]
  8. RABEPRAZOLE SODIUM [Concomitant]
     Indication: ULCER
  9. REBAMIPIDE [Concomitant]
     Indication: ULCER
  10. FERROUS SULFATE TAB [Concomitant]
  11. TRIAZOLAM [Concomitant]
     Indication: INSOMNIA
     Dates: start: 20070401
  12. ETIZOLAM [Concomitant]
     Indication: INSOMNIA
     Dates: start: 20070401
  13. SUCRALFATE [Concomitant]
     Indication: NAUSEA
     Dosage: 900MG PER DAY
     Dates: start: 20070529

REACTIONS (11)
  - CHILLS [None]
  - DIARRHOEA [None]
  - DRUG INTERACTION [None]
  - HYPERHIDROSIS [None]
  - HYPERREFLEXIA [None]
  - MALAISE [None]
  - MENTAL STATUS CHANGES [None]
  - NAUSEA [None]
  - SEROTONIN SYNDROME [None]
  - TREMOR [None]
  - VOMITING [None]
